FAERS Safety Report 6189154-7 (Version None)
Quarter: 2009Q2

REPORT INFORMATION
  Report Type: 
  Country: None (occurrence: None)
  Receive Date: 20090513
  Receipt Date: 20090318
  Transmission Date: 20091009
  Serious: No
  Sender: FDA-Public Use
  Company Number: A0774345A

PATIENT
  Age: 14 Year
  Sex: Male

DRUGS (1)
  1. TREXIMET [Suspect]
     Indication: MIGRAINE
     Dosage: 1TAB SINGLE DOSE
     Route: 048
     Dates: start: 20090305

REACTIONS (3)
  - ASTHENIA [None]
  - HEART RATE INCREASED [None]
  - PANIC ATTACK [None]
